FAERS Safety Report 5020427-7 (Version None)
Quarter: 2006Q2

REPORT INFORMATION
  Report Type: 
  Country: None (occurrence: None)
  Receive Date: 20060601
  Receipt Date: 20060518
  Transmission Date: 20061013
  Serious: Yes (Hospitalization)
  Sender: FDA-Public Use
  Company Number: 13385588

PATIENT
  Age: 3 Year
  Sex: Male

DRUGS (3)
  1. CEFADROXIL MONOHYDRATE [Suspect]
     Indication: NASOPHARYNGITIS
     Dosage: 5 MILLILITER 1 DAY
     Dates: start: 20060515, end: 20060518
  2. PREDSIM (PREDNISOLONE) [Concomitant]
  3. BRONDILAT (AMBROXOL ACEFYLLINATE) [Concomitant]

REACTIONS (1)
  - DYSPNOEA [None]
